FAERS Safety Report 4811029-3 (Version None)
Quarter: 2005Q4

REPORT INFORMATION
  Report Type: 
  Country: None (occurrence: None)
  Receive Date: 20051027
  Receipt Date: 20051018
  Transmission Date: 20060501
  Serious: Yes (Hospitalization)
  Sender: FDA-Public Use
  Company Number: JP-JNJFOC-20041106198

PATIENT
  Sex: Female
  Weight: 93 kg

DRUGS (28)
  1. REMICADE [Suspect]
     Route: 042
  2. REMICADE [Suspect]
     Indication: RHEUMATOID ARTHRITIS
     Route: 042
  3. PREDNISOLONE [Suspect]
     Route: 048
  4. PREDNISOLONE [Suspect]
     Route: 048
  5. PREDNISOLONE [Suspect]
     Route: 048
  6. PREDNISOLONE [Suspect]
     Route: 048
  7. PREDNISOLONE [Suspect]
     Route: 048
  8. PREDNISOLONE [Suspect]
     Indication: RHEUMATOID ARTHRITIS
     Route: 048
  9. RHEUMATREX [Suspect]
     Route: 048
  10. RHEUMATREX [Suspect]
     Indication: RHEUMATOID ARTHRITIS
     Route: 048
  11. LOXONINE [Concomitant]
     Indication: RHEUMATOID ARTHRITIS
     Route: 048
  12. SELBEX [Concomitant]
     Route: 048
  13. ACINON [Concomitant]
     Route: 048
  14. FARNERATE [Concomitant]
     Indication: RHEUMATOID ARTHRITIS
     Dosage: RIGHT EYE
  15. ROHYPNOL [Concomitant]
     Indication: INSOMNIA
     Route: 048
  16. AMOBAN [Concomitant]
     Indication: INSOMNIA
     Route: 048
  17. MYSLEE [Concomitant]
     Indication: INSOMNIA
     Route: 048
  18. BACTER [Concomitant]
     Route: 048
  19. NITRAZEPAM [Concomitant]
     Route: 048
  20. RESLIN [Concomitant]
     Route: 048
  21. MEILAX [Concomitant]
     Route: 048
  22. LEXOTAN [Concomitant]
     Route: 048
  23. KETOPROFEN [Concomitant]
     Route: 048
  24. LACBON [Concomitant]
     Route: 048
  25. LASIX [Concomitant]
     Route: 048
  26. ITRIZOLE [Concomitant]
     Route: 048
  27. TAKEPRON [Concomitant]
     Route: 048
  28. CAMOSTAT [Concomitant]
     Route: 048

REACTIONS (1)
  - PNEUMOCYSTIS JIROVECI PNEUMONIA [None]
